FAERS Safety Report 4264653-3 (Version None)
Quarter: 2004Q1

REPORT INFORMATION
  Report Type: 
  Country: None (occurrence: None)
  Receive Date: 20040102
  Receipt Date: 20031223
  Transmission Date: 20041129
  Serious: Yes (Death)
  Sender: FDA-Public Use
  Company Number: USA-2003-0004037

PATIENT
  Age: 57 Year
  Sex: Female
  Weight: 56.7 kg

DRUGS (11)
  1. OXYCONTIN [Suspect]
     Indication: PAIN
     Dosage: ORAL
     Route: 048
     Dates: start: 20000725, end: 20010301
  2. MS CONTIN [Suspect]
     Indication: PAIN
     Dosage: 60 MG, BID, ORAL
     Route: 048
     Dates: start: 20010215, end: 20010413
  3. PREDNISONE [Concomitant]
  4. DILANTIN [Concomitant]
  5. ALBUTEROL [Concomitant]
  6. ACETAMINOPHEN AND HYDROCODONE BITARTRATE [Concomitant]
  7. LEVAQUIN [Concomitant]
  8. AMITRIPTYLINE HCL [Concomitant]
  9. EFFEXOR [Concomitant]
  10. ULTRAM [Concomitant]
  11. COLCHICINE (COLCHICINE) [Concomitant]

REACTIONS (12)
  - ARTHRALGIA [None]
  - ASTHMA [None]
  - BRONCHIAL OBSTRUCTION [None]
  - CYANOSIS [None]
  - DIFFICULTY IN WALKING [None]
  - DRUG INEFFECTIVE [None]
  - DRUG LEVEL ABOVE THERAPEUTIC [None]
  - FEELING ABNORMAL [None]
  - LUNG HYPERINFLATION [None]
  - MYCOBACTERIA SPUTUM TEST POSITIVE [None]
  - TREATMENT NONCOMPLIANCE [None]
  - VISION BLURRED [None]
